FAERS Safety Report 5893516-2 (Version None)
Quarter: 2008Q3

REPORT INFORMATION
  Report Type: 
  Country: None (occurrence: None)
  Receive Date: 20080923
  Receipt Date: 20080916
  Transmission Date: 20090109
  Serious: Yes (Hospitalization)
  Sender: FDA-Public Use
  Company Number: FR-ABBOTT-08P-056-0476815-00

PATIENT
  Sex: Female

DRUGS (11)
  1. TARKA [Suspect]
     Indication: HYPERTENSION
     Route: 048
     Dates: start: 20070914, end: 20080807
  2. ATENOLOL [Suspect]
     Indication: HYPERTENSION
     Dosage: 100 MG DAILY
     Route: 048
     Dates: end: 20080807
  3. AMIODARONE HCL [Suspect]
     Indication: ATRIAL FIBRILLATION
     Route: 048
     Dates: end: 20080807
  4. AMIODARONE HCL [Suspect]
     Dosage: 5 TIME A WEEK
     Dates: start: 20080812
  5. SPIRONOLACTONE [Suspect]
     Indication: HYPERTENSION
     Dosage: 50MG DAILY
     Route: 048
     Dates: end: 20080807
  6. FUROSEMIDE [Concomitant]
     Indication: HYPERTENSION
     Route: 048
  7. LIOTHYRONINE SODIUM [Concomitant]
     Indication: DRUG USE FOR UNKNOWN INDICATION
     Dosage: 0.5 DOSAGE FORMS DAILY
  8. ACETAMINOPHEN [Concomitant]
     Indication: DRUG USE FOR UNKNOWN INDICATION
  9. ALPRAZOLAM [Concomitant]
     Indication: DRUG USE FOR UNKNOWN INDICATION
     Dates: end: 20080807
  10. EXTRACT OF STANDARADIZED GINGKO BILOBA (EGB 761) [Concomitant]
     Indication: DRUG USE FOR UNKNOWN INDICATION
     Dosage: 3 DOSAGE FORMS DAILY
     Dates: end: 20080807
  11. EXTRACT OF STANDARADIZED GINGKO BILOBA (EGB 761) [Concomitant]
     Dates: start: 20080812

REACTIONS (6)
  - ATRIOVENTRICULAR BLOCK SECOND DEGREE [None]
  - CHEST INJURY [None]
  - FALL [None]
  - HYPERKALAEMIA [None]
  - HYPONATRAEMIA [None]
  - MALAISE [None]
